FAERS Safety Report 8458688-4 (Version None)
Quarter: 2012Q2

REPORT INFORMATION
  Report Type: 
  Country: None (occurrence: None)
  Receive Date: 20120622
  Receipt Date: 20120612
  Transmission Date: 20120825
  Serious: Yes (Hospitalization)
  Sender: FDA-Public Use
  Company Number: JP-EISAI INC-E7389-02561-SPO-JP

PATIENT
  Age: 74 Year
  Sex: Female
  Weight: 43 kg

DRUGS (8)
  1. LENDORMIN [Concomitant]
     Route: 048
  2. VITAMIN B12 [Concomitant]
     Route: 048
  3. GOSHAJINKIGAN [Concomitant]
     Route: 048
  4. PRIMPERAN TAB [Concomitant]
     Route: 048
  5. HALAVEN [Suspect]
     Indication: BREAST CANCER
     Dosage: UNKNOWN
     Route: 041
  6. LORFENAMIN [Concomitant]
     Route: 048
  7. REBAMIPIDE [Concomitant]
     Route: 048
  8. PREGABALIN [Concomitant]
     Route: 048

REACTIONS (2)
  - BLADDER TAMPONADE [None]
  - URINARY TRACT INFECTION [None]
